FAERS Safety Report 7627362 (Version 2)
Quarter: 2013Q2

REPORT INFORMATION
  Report Type: Spontaneous
  Country: US (occurrence: US)
  Receive Date: 20101013
  Receipt Date: 20130403
  Transmission Date: 20140414
  Serious: No
  Sender: FDA-Public Use
  Company Number: US-ASTRAZENECA-2010SE33750

PATIENT
  Age: 49 Year
  Sex: Male
  Weight: 104.3 kg

DRUGS (6)
  1. SYMBICORT [Suspect]
     Indication: CHRONIC OBSTRUCTIVE PULMONARY DISEASE
     Dosage: 160/4.5 MCG BID
     Route: 055
     Dates: start: 20100701
  2. SPIRIVA [Concomitant]
  3. ALBUTEROL [Concomitant]
  4. KEFLEX [Concomitant]
  5. LISINOPRI [Concomitant]
  6. PREDNISONE [Concomitant]

REACTIONS (3)
  - Skin infection [Unknown]
  - Respiratory disorder [Unknown]
  - Drug dose omission [Unknown]
